FAERS Safety Report 4692187-0 (Version None)
Quarter: 2005Q2

REPORT INFORMATION
  Report Type: 
  Country: None (occurrence: None)
  Receive Date: 20050614
  Receipt Date: 20050602
  Transmission Date: 20051028
  Serious: Yes (Hospitalization)
  Sender: FDA-Public Use
  Company Number: RENA-11402

PATIENT
  Age: 57 Year
  Sex: Female

DRUGS (1)
  1. PHOSBLOCK-250 MG TABLET [Suspect]
     Indication: HYPERPHOSPHATAEMIA

REACTIONS (1)
  - CEREBRAL HAEMORRHAGE [None]
